FAERS Safety Report 6287705-5 (Version None)
Quarter: 2009Q3

REPORT INFORMATION
  Report Type: 
  Country: None (occurrence: None)
  Receive Date: 20090717
  Receipt Date: 20090504
  Transmission Date: 20100115
  Serious: Yes (Other)
  Sender: FDA-Public Use
  Company Number: 2009SP009589

PATIENT
  Sex: Female

DRUGS (1)
  1. INTEGRILIN [Suspect]
     Indication: STENT PLACEMENT
     Dosage: 0.75 MG;PARN
     Dates: start: 20090504, end: 20090504

REACTIONS (1)
  - RETROPERITONEAL HAEMORRHAGE [None]
